FAERS Safety Report 16305700 (Version 1)
Quarter: 2019Q2

REPORT INFORMATION
  Report Type: Spontaneous
  Country: US (occurrence: US)
  Receive Date: 20190513
  Receipt Date: 20190513
  Transmission Date: 20190711
  Serious: No
  Sender: FDA-Public Use
  Company Number: US-ELI_LILLY_AND_COMPANY-US201904014834

PATIENT
  Sex: Male

DRUGS (2)
  1. HUMULIN 70/30 [Suspect]
     Active Substance: INSULIN HUMAN
     Dosage: UNK, PRN
     Route: 058
  2. HUMULIN 70/30 [Suspect]
     Active Substance: INSULIN HUMAN
     Indication: DIABETES MELLITUS
     Dosage: UNK, PRN
     Route: 058

REACTIONS (4)
  - Fall [Unknown]
  - Pain [Unknown]
  - Anxiety [Unknown]
  - Joint dislocation [Unknown]
